FAERS Safety Report 11758409 (Version 1)
Quarter: 2015Q4

REPORT INFORMATION
  Report Type: Spontaneous
  Country: None (occurrence: None)
  Receive Date: 20151118
  Receipt Date: 20151118
  Transmission Date: 20160304
  Serious: Yes (Other)
  Sender: FDA-Public Use
  Company Number: None

PATIENT
  Age: 29 Year
  Sex: Male
  Weight: 127.01 kg

DRUGS (8)
  1. BACLOFEN. [Suspect]
     Active Substance: BACLOFEN
     Indication: MUSCLE TIGHTNESS
     Dosage: 2, 10MG TABLETS, TWICE A DAY TWICE DAILY TAKEN BY MOUTH
     Route: 048
     Dates: start: 20150923, end: 20151116
  2. LIDOCAINE PATCH [Concomitant]
     Active Substance: LIDOCAINE
  3. NORCO [Concomitant]
     Active Substance: ACETAMINOPHEN\HYDROCODONE BITARTRATE
  4. BACLOFEN. [Concomitant]
     Active Substance: BACLOFEN
  5. BACLOFEN. [Suspect]
     Active Substance: BACLOFEN
     Indication: MUSCLE SPASMS
     Dosage: 2, 10MG TABLETS, TWICE A DAY TWICE DAILY TAKEN BY MOUTH
     Route: 048
     Dates: start: 20150923, end: 20151116
  6. BACLOFEN. [Suspect]
     Active Substance: BACLOFEN
     Indication: MUSCLE RIGIDITY
     Dosage: 2, 10MG TABLETS, TWICE A DAY TWICE DAILY TAKEN BY MOUTH
     Route: 048
     Dates: start: 20150923, end: 20151116
  7. COLACE [Concomitant]
     Active Substance: DOCUSATE SODIUM
  8. FAMOTIDINE. [Concomitant]
     Active Substance: FAMOTIDINE

REACTIONS (2)
  - Therapy change [None]
  - Seizure [None]

NARRATIVE: CASE EVENT DATE: 20151114
